FAERS Safety Report 10948267 (Version 3)
Quarter: 2015Q2

REPORT INFORMATION
  Report Type: Spontaneous
  Country: DE (occurrence: DE)
  Receive Date: 20150324
  Receipt Date: 20150408
  Transmission Date: 20150821
  Serious: Yes (Hospitalization, Other)
  Sender: FDA-Public Use
  Company Number: DE-JNJFOC-20150309639

PATIENT
  Age: 28 Year
  Sex: Male
  Weight: 113 kg

DRUGS (2)
  1. REGAINE MAENNER [Suspect]
     Active Substance: MINOXIDIL
     Route: 061
  2. REGAINE MAENNER [Suspect]
     Active Substance: MINOXIDIL
     Indication: PRODUCT USED FOR UNKNOWN INDICATION
     Dosage: 2 SPRAY HUBS PER APPLICATION (DAILY DOSAGE LOWER AS RECOMMENDED).
     Route: 061
     Dates: start: 20150212, end: 20150214

REACTIONS (8)
  - Alopecia [Unknown]
  - Hyperventilation [Unknown]
  - Paraesthesia [Unknown]
  - Chest discomfort [Unknown]
  - Palpitations [Unknown]
  - Headache [Unknown]
  - Hypoaesthesia [Unknown]
  - Drug prescribing error [Recovered/Resolved]

NARRATIVE: CASE EVENT DATE: 20150212
